FAERS Safety Report 10185736 (Version 2)
Quarter: 2014Q2

REPORT INFORMATION
  Report Type: Spontaneous
  Country: AT (occurrence: AT)
  Receive Date: 20140521
  Receipt Date: 20140630
  Transmission Date: 20141212
  Serious: Yes (Other)
  Sender: FDA-Public Use
  Company Number: AT-JNJFOC-20140505342

PATIENT
  Age: 73 Year
  Sex: Male

DRUGS (6)
  1. ZYTIGA [Suspect]
     Indication: PROSTATE CANCER
     Route: 048
     Dates: start: 20130704, end: 20140402
  2. PREDNISONE [Concomitant]
     Route: 065
     Dates: start: 20140312
  3. SPIRIVA [Concomitant]
     Route: 065
  4. SERETIDE [Concomitant]
     Route: 065
  5. LASIX [Concomitant]
     Route: 065
  6. LASIX [Concomitant]
     Route: 065

REACTIONS (2)
  - Acute myeloid leukaemia [Not Recovered/Not Resolved]
  - Pancytopenia [Recovered/Resolved]
